FAERS Safety Report 4371463-5 (Version None)
Quarter: 2004Q2

REPORT INFORMATION
  Report Type: 
  Country: None (occurrence: None)
  Receive Date: 20040602
  Receipt Date: 20040521
  Transmission Date: 20050107
  Serious: Yes (Hospitalization)
  Sender: FDA-Public Use
  Company Number: US-JNJFOC-20040505544

PATIENT
  Age: 62 Year
  Sex: Female

DRUGS (11)
  1. INFLIXIMAB (INFLIXIMAB, RECOMBINANT) LYOPHILIZED POWDER [Suspect]
     Indication: RHEUMATOID ARTHRITIS
     Dosage: INTRAVENOUS
     Route: 042
     Dates: start: 20001024
  2. ATACAND [Concomitant]
  3. BETAPACE [Concomitant]
  4. COUMADIN [Concomitant]
  5. FOLIC ACID [Concomitant]
  6. LASIX [Concomitant]
  7. NORVASC [Concomitant]
  8. TYLENOL [Concomitant]
  9. METHOTREXATE [Concomitant]
  10. ZOCOR [Concomitant]
  11. LIPITOR [Concomitant]

REACTIONS (2)
  - ATRIAL FIBRILLATION [None]
  - FLUID OVERLOAD [None]
